FAERS Safety Report 25936004 (Version 1)
Quarter: 2025Q4

REPORT INFORMATION
  Report Type: Spontaneous
  Country: EU (occurrence: EU)
  Receive Date: 20251017
  Receipt Date: 20251017
  Transmission Date: 20260117
  Serious: Yes (Hospitalization, Other)
  Sender: NOVARTIS
  Company Number: EU-002147023-NVSC2025DE147119

PATIENT
  Age: 30 Year
  Sex: Female
  Weight: 61 kg

DRUGS (1)
  1. COSENTYX [Suspect]
     Active Substance: SECUKINUMAB
     Indication: Ankylosing spondylitis
     Dosage: UNK, QW (1X WEEKLY FOR THE START)
     Route: 065
     Dates: start: 20250830, end: 20250906

REACTIONS (9)
  - Diarrhoea [Not Recovered/Not Resolved]
  - Abdominal pain upper [Not Recovered/Not Resolved]
  - Headache [Not Recovered/Not Resolved]
  - Intestinal ulcer [Unknown]
  - Inflammation [Unknown]
  - Pelvic pain [Unknown]
  - Weight decreased [Unknown]
  - Eczema [Unknown]
  - Spinal pain [Unknown]

NARRATIVE: CASE EVENT DATE: 20250101
